FAERS Safety Report 4735077-7 (Version None)
Quarter: 2005Q3

REPORT INFORMATION
  Report Type: 
  Country: None (occurrence: None)
  Receive Date: 20050804
  Receipt Date: 20050419
  Transmission Date: 20060218
  Serious: Yes (Other)
  Sender: FDA-Public Use
  Company Number: US-MERCK-0504USA03722

PATIENT
  Age: 48 Year
  Sex: Male
  Weight: 95 kg

DRUGS (20)
  1. VIOXX [Suspect]
     Indication: ARTHRITIS
     Route: 048
     Dates: start: 19990101, end: 20040301
  2. ASPIRIN [Concomitant]
     Route: 065
  3. AMBIEN [Concomitant]
     Route: 065
  4. CUTIVATE [Concomitant]
     Route: 065
  5. DOXAZOSIN MESYLATE [Concomitant]
     Route: 065
  6. ENALAPRIL MALEATE [Concomitant]
     Route: 065
  7. LOPROX [Concomitant]
     Route: 065
  8. LORAZEPAM [Concomitant]
     Route: 065
  9. NIFEDIAC [Concomitant]
     Route: 065
  10. PAXIL [Concomitant]
     Route: 065
  11. ULTRAM [Concomitant]
     Route: 065
  12. VI-Q-TUSS EXPECTORANT [Concomitant]
     Route: 065
  13. ZITHROMAX [Concomitant]
     Route: 065
  14. ZITHROMAX [Concomitant]
     Route: 065
  15. ZYRTEC [Concomitant]
     Route: 065
  16. CLARITIN [Concomitant]
     Route: 065
  17. MECLIZINE [Concomitant]
     Route: 065
  18. METHOCARBAMOL [Concomitant]
     Route: 065
  19. PROCARDIA [Concomitant]
     Route: 065
  20. DYAZIDE [Concomitant]
     Indication: HYPERTENSION
     Route: 065

REACTIONS (1)
  - MYOCARDIAL INFARCTION [None]
